FAERS Safety Report 10159146 (Version 1)
Quarter: 2014Q2

REPORT INFORMATION
  Report Type: Spontaneous
  Country: US (occurrence: None)
  Receive Date: 20140507
  Receipt Date: 20140507
  Transmission Date: 20141212
  Serious: No
  Sender: FDA-Public Use
  Company Number: None

PATIENT
  Age: 38 Year
  Sex: Female

DRUGS (1)
  1. HUMIRA [Suspect]
     Indication: CROHN^S DISEASE
     Dosage: 160MG DAY 1 SQ
     Route: 058
     Dates: start: 20140502, end: 20140505

REACTIONS (5)
  - Fatigue [None]
  - Myalgia [None]
  - Muscle spasms [None]
  - Dizziness [None]
  - Hemiparesis [None]
